FAERS Safety Report 9091193 (Version 1)
Quarter: 2013Q1

REPORT INFORMATION
  Report Type: Spontaneous
  Country: US (occurrence: US)
  Receive Date: 20130201
  Receipt Date: 20130201
  Transmission Date: 20140127
  Serious: No
  Sender: FDA-Public Use
  Company Number: US-GALDERMA-US-GDP-12414025

PATIENT
  Sex: Female
  Weight: 77.11 kg

DRUGS (2)
  1. EPIDUO (ADAPALENE) [Suspect]
     Indication: ACNE
     Route: 061
     Dates: start: 201203
  2. BIRTH CONTROL PILL (NOS) [Concomitant]
     Indication: CONTRACEPTION
     Route: 048

REACTIONS (2)
  - Drug ineffective [None]
  - Off label use [None]
